FAERS Safety Report 9643786 (Version 2)
Quarter: 2013Q4

REPORT INFORMATION
  Report Type: Spontaneous
  Country: ES (occurrence: None)
  Receive Date: 20131022
  Receipt Date: 20131101
  Transmission Date: 20140711
  Serious: Yes (Other)
  Sender: FDA-Public Use
  Company Number: 2013-1632

PATIENT
  Age: 69 Year
  Sex: Female

DRUGS (4)
  1. CARFILZOMIB (CARFILZOMIB (20 MILLIGRAM(S)/SQ.METER, INJECTION FOR INFUSION) (CARFILZOMIB) [Suspect]
     Indication: PLASMA CELL MYELOMA
     Dosage: (35 MG, DAYS 1,2)
     Route: 042
     Dates: start: 20130730, end: 20130731
  2. DEXAMETHASONE (DEXAMETHASONE) (DEXAMETHASONE) [Suspect]
     Indication: PLASMA CELL MYELOMA
     Dosage: (20 MG, DAYS 1, 2, 8, 9, 15, 16, 22, 23 EVERY 28 DAYS)
     Route: 048
     Dates: start: 20130730
  3. VALACICLOVIR (VALACICLOVIR) [Concomitant]
  4. SEPTRIM FORTE (SULFAMETHOXAZOLE, TRIMETHOPRIM) (SULFAMETHOXAZOLE, TRIMETHOPRIM) [Concomitant]

REACTIONS (2)
  - Deep vein thrombosis [None]
  - Pulmonary embolism [None]
